FAERS Safety Report 9013613 (Version 1)
Quarter: 2013Q1

REPORT INFORMATION
  Report Type: Spontaneous
  Country: PK (occurrence: PK)
  Receive Date: 20130115
  Receipt Date: 20130115
  Transmission Date: 20140127
  Serious: Yes (Disabling, Other)
  Sender: FDA-Public Use
  Company Number: PHHY2013PK002937

PATIENT
  Age: 53 Year
  Sex: Male

DRUGS (2)
  1. ZOMETA [Suspect]
     Indication: BONE CANCER
     Dosage: 4 MG, FOUR WEEKLY
     Route: 042
     Dates: start: 20110117, end: 20121117
  2. AFINITOR [Concomitant]
     Indication: RENAL CELL CARCINOMA
     Dosage: 10 MG, QD
     Route: 048
     Dates: start: 20120531, end: 20120831

REACTIONS (5)
  - Osteonecrosis of jaw [Unknown]
  - Bone swelling [Recovering/Resolving]
  - Pain [Recovering/Resolving]
  - Aphagia [Unknown]
  - Erythema [Recovering/Resolving]
